FAERS Safety Report 8113074-1 (Version None)
Quarter: 2012Q1

REPORT INFORMATION
  Report Type: 
  Country: None (occurrence: None)
  Receive Date: 20120203
  Receipt Date: 20120126
  Transmission Date: 20120608
  Serious: No
  Sender: FDA-Public Use
  Company Number: JP-GLAXOSMITHKLINE-B0775011A

PATIENT
  Sex: Male
  Weight: 33 kg

DRUGS (5)
  1. RELENZA [Suspect]
     Indication: INFLUENZA
     Route: 055
     Dates: start: 20111221, end: 20111222
  2. MEPTIN [Concomitant]
     Indication: INFLUENZA
     Dosage: 2IUAX PER DAY
     Route: 048
     Dates: start: 20111220, end: 20111225
  3. CLARITHROMYCIN [Concomitant]
     Indication: INFLUENZA
     Dosage: 2IUAX PER DAY
     Route: 048
     Dates: start: 20111221, end: 20111225
  4. MUCODYNE [Concomitant]
     Indication: INFLUENZA
     Dosage: 2IUAX PER DAY
     Route: 048
     Dates: start: 20111220, end: 20111225
  5. CEFAZOLIN SODIUM [Concomitant]
     Indication: INFLUENZA
     Dosage: 2IUAX PER DAY
     Route: 048
     Dates: start: 20111221, end: 20111225

REACTIONS (8)
  - MOOD ALTERED [None]
  - ABNORMAL BEHAVIOUR [None]
  - NAUSEA [None]
  - COUGH [None]
  - RESTLESSNESS [None]
  - SCREAMING [None]
  - PYREXIA [None]
  - IRRITABILITY [None]
